FAERS Safety Report 9465402 (Version 2)
Quarter: 2013Q4

REPORT INFORMATION
  Report Type: Spontaneous
  Country: US (occurrence: US)
  Receive Date: 20130820
  Receipt Date: 20131014
  Transmission Date: 20140711
  Serious: Yes (Hospitalization)
  Sender: FDA-Public Use
  Company Number: US-BIOGENIDEC-2013BI073433

PATIENT
  Age: 47 Year
  Sex: Male

DRUGS (4)
  1. TECFIDERA [Suspect]
     Indication: MULTIPLE SCLEROSIS
     Route: 048
     Dates: start: 20130605
  2. AMITRIPTYLINE HCL [Concomitant]
  3. ASPIRIN LOW DOSE [Concomitant]
  4. NALTREXONE [Concomitant]

REACTIONS (5)
  - Rash [Unknown]
  - Multiple sclerosis relapse [Unknown]
  - Asthenia [Unknown]
  - Dyspnoea [Unknown]
  - Speech disorder [Unknown]
